FAERS Safety Report 11356864 (Version 1)
Quarter: 2015Q3

REPORT INFORMATION
  Report Type: Spontaneous
  Country: US (occurrence: US)
  Receive Date: 20150803
  Receipt Date: 20150803
  Transmission Date: 20151125
  Serious: No
  Sender: FDA-Public Use
  Company Number: US-ELI_LILLY_AND_COMPANY-US201301008835

PATIENT
  Age: 47 Year
  Sex: Male

DRUGS (1)
  1. STRATTERA [Suspect]
     Active Substance: ATOMOXETINE HYDROCHLORIDE
     Indication: ATTENTION DEFICIT/HYPERACTIVITY DISORDER
     Dosage: UNK, PRN
     Route: 065
     Dates: start: 2009

REACTIONS (3)
  - Tinnitus [Unknown]
  - Tinnitus [Unknown]
  - Tinnitus [Unknown]

NARRATIVE: CASE EVENT DATE: 201106
